FAERS Safety Report 4353731-6 (Version None)
Quarter: 2004Q2

REPORT INFORMATION
  Report Type: 
  Country: None (occurrence: None)
  Receive Date: 20040503
  Receipt Date: 20040218
  Transmission Date: 20050107
  Serious: No
  Sender: FDA-Public Use
  Company Number: 000842

PATIENT
  Age: 43 Year
  Sex: Female
  Weight: 89.8 kg

DRUGS (2)
  1. CENESTIN [Suspect]
     Indication: OESTROGEN THERAPY
     Dosage: 1.00 TABLET, QD, ORAL
     Route: 048
     Dates: start: 20040210, end: 20040214
  2. PREVACID [Concomitant]

REACTIONS (1)
  - CHEST PAIN [None]
